FAERS Safety Report 5921002-X (Version None)
Quarter: 2008Q4

REPORT INFORMATION
  Report Type: 
  Country: None (occurrence: None)
  Receive Date: 20081016
  Receipt Date: 20081006
  Transmission Date: 20090506
  Serious: Yes (Hospitalization, Other)
  Sender: FDA-Public Use
  Company Number: JP-ASTRAZENECA-2008AP07694

PATIENT
  Age: 78 Year
  Sex: Male

DRUGS (7)
  1. SEROQUEL [Suspect]
     Indication: BEHAVIOURAL AND PSYCHIATRIC SYMPTOMS OF DEMENTIA
     Route: 048
     Dates: start: 20080315, end: 20080316
  2. LOCHOL [Concomitant]
     Indication: LIPIDS ABNORMAL
     Route: 048
  3. ALUSA [Concomitant]
     Indication: GASTRITIS
     Route: 048
  4. NIZATIN [Concomitant]
     Indication: GASTRITIS
     Route: 048
  5. SIGMART [Concomitant]
     Indication: PROPHYLAXIS
     Route: 048
  6. ASPIRIN [Concomitant]
     Indication: PROPHYLAXIS
     Route: 048
  7. HERBESSER [Concomitant]
     Indication: HYPERTENSION
     Route: 048

REACTIONS (4)
  - ALTERED STATE OF CONSCIOUSNESS [None]
  - FALL [None]
  - GAIT DISTURBANCE [None]
  - TRAUMATIC INTRACRANIAL HAEMORRHAGE [None]
